FAERS Safety Report 19413220 (Version 2)
Quarter: 2025Q1

REPORT INFORMATION
  Report Type: Spontaneous
  Country: CA (occurrence: CA)
  Receive Date: 20210614
  Receipt Date: 20250218
  Transmission Date: 20250408
  Serious: Yes (Other)
  Sender: MYLAN
  Company Number: CA-MYLANLABS-2021M1033651

PATIENT
  Age: 40 Year
  Sex: Female

DRUGS (12)
  1. NORETHINDRONE [Suspect]
     Active Substance: NORETHINDRONE
     Indication: Contraception
     Route: 065
  2. ENTYVIO [Suspect]
     Active Substance: VEDOLIZUMAB
     Indication: Crohn^s disease
     Route: 042
  3. ENTYVIO [Suspect]
     Active Substance: VEDOLIZUMAB
     Indication: Crohn^s disease
     Route: 042
  4. CANNABIDIOL [Concomitant]
     Active Substance: CANNABIDIOL
     Route: 065
  5. ZOMIG [Concomitant]
     Active Substance: ZOLMITRIPTAN
     Route: 065
  6. MESALAMINE [Concomitant]
     Active Substance: MESALAMINE
     Indication: Contraception
     Route: 065
  7. MESALAMINE [Concomitant]
     Active Substance: MESALAMINE
     Dosage: 1.2 GRAM, QID (4 EVERY 1 DAYS)
     Route: 065
  8. CANNABIS SATIVA FLOWERING TOP [Concomitant]
     Active Substance: CANNABIS SATIVA FLOWERING TOP
     Route: 065
  9. COLCHICINE [Concomitant]
     Active Substance: COLCHICINE
     Route: 065
  10. DIENOGEST [Concomitant]
     Active Substance: DIENOGEST
     Route: 065
  11. RAMIPRIL [Concomitant]
     Active Substance: RAMIPRIL
     Dosage: 5 MILLIGRAM, QD (1 EVERY 1 DAYS)
     Route: 065
  12. ZENHALE [Concomitant]
     Active Substance: FORMOTEROL FUMARATE\MOMETASONE FUROATE
     Route: 065

REACTIONS (9)
  - Gastrointestinal bacterial infection [Not Recovered/Not Resolved]
  - Crohn^s disease [Not Recovered/Not Resolved]
  - Blood albumin increased [Not Recovered/Not Resolved]
  - Migraine [Not Recovered/Not Resolved]
  - Onycholysis [Not Recovered/Not Resolved]
  - Vertigo [Not Recovered/Not Resolved]
  - COVID-19 [Not Recovered/Not Resolved]
  - Therapeutic reaction time decreased [Not Recovered/Not Resolved]
  - Weight increased [Not Recovered/Not Resolved]
